FAERS Safety Report 25237153 (Version 1)
Quarter: 2025Q2

REPORT INFORMATION
  Report Type: Spontaneous
  Country: US (occurrence: US)
  Receive Date: 20250425
  Receipt Date: 20250425
  Transmission Date: 20250716
  Serious: No
  Sender: ELI LILLY AND COMPANY
  Company Number: US-ELI_LILLY_AND_COMPANY-US202504014260

PATIENT
  Age: 13 Year
  Sex: Male
  Weight: 40.816 kg

DRUGS (1)
  1. STRATTERA [Suspect]
     Active Substance: ATOMOXETINE HYDROCHLORIDE
     Indication: Attention deficit hyperactivity disorder
     Dosage: 18 MG, DAILY
     Route: 065

REACTIONS (5)
  - Underweight [Unknown]
  - Decreased appetite [Unknown]
  - Abdominal discomfort [Unknown]
  - Vomiting [Unknown]
  - Growth retardation [Unknown]
